FAERS Safety Report 5967524-7 (Version None)
Quarter: 2008Q4

REPORT INFORMATION
  Report Type: 
  Country: None (occurrence: None)
  Receive Date: 20081125
  Receipt Date: 20081113
  Transmission Date: 20090506
  Serious: Yes (Other)
  Sender: FDA-Public Use
  Company Number: ZA-PFIZER INC-2008096473

PATIENT
  Sex: Female
  Weight: 8 kg

DRUGS (1)
  1. ZYVOXID SUSPENSION, ORAL [Suspect]
     Indication: STAPHYLOCOCCAL INFECTION
     Route: 048
     Dates: start: 20080914, end: 20080917

REACTIONS (3)
  - COLITIS [None]
  - GASTRITIS [None]
  - LETHARGY [None]
